FAERS Safety Report 5531943-3 (Version None)
Quarter: 2007Q4

REPORT INFORMATION
  Report Type: 
  Country: None (occurrence: None)
  Receive Date: 20071120
  Receipt Date: 20070720
  Transmission Date: 20080405
  Serious: No
  Sender: FDA-Public Use
  Company Number: WAES 0707USA03592

PATIENT
  Age: 62 Year
  Sex: Female

DRUGS (8)
  1. JANUVIA [Suspect]
     Indication: TYPE 2 DIABETES MELLITUS
     Dosage: 100 MG/DAILY/PO
     Route: 048
     Dates: start: 20070715, end: 20070715
  2. AMBIEN [Concomitant]
  3. ELAVIL [Concomitant]
  4. NEURONTIN [Concomitant]
  5. PAXIL [Concomitant]
  6. PRILOSEC [Concomitant]
  7. ATENOLOL [Concomitant]
  8. TRMADOL HYDROCHLORIDE [Concomitant]

REACTIONS (6)
  - JOINT SWELLING [None]
  - LIP BLISTER [None]
  - OEDEMA PERIPHERAL [None]
  - ORAL PAIN [None]
  - PARAESTHESIA [None]
  - SENSATION OF HEAVINESS [None]
